FAERS Safety Report 10205332 (Version 1)
Quarter: 2014Q2

REPORT INFORMATION
  Report Type: Spontaneous
  Country: GB (occurrence: GB)
  Receive Date: 20140529
  Receipt Date: 20140529
  Transmission Date: 20141212
  Serious: Yes (Other)
  Sender: FDA-Public Use
  Company Number: GB-ACTAVIS-2014-11136

PATIENT
  Sex: Female
  Weight: 95 kg

DRUGS (3)
  1. DICLOFENAC (UNKNOWN) [Suspect]
     Indication: PAIN
     Dosage: UNK
     Route: 048
     Dates: start: 20070411, end: 20070706
  2. CHONDROITIN GLUCOSAMIN [Concomitant]
     Indication: ARTHROPATHY
     Dosage: UNK
     Route: 048
     Dates: start: 2001, end: 2009
  3. PARACETAMOL [Concomitant]
     Indication: PAIN
     Dosage: 1000 MG, QID
     Route: 048
     Dates: start: 2004, end: 2008

REACTIONS (1)
  - Abnormal dreams [Recovered/Resolved]
